FAERS Safety Report 6415027-8 (Version None)
Quarter: 2009Q4

REPORT INFORMATION
  Report Type: 
  Country: None (occurrence: None)
  Receive Date: 20091026
  Receipt Date: 20090916
  Transmission Date: 20100525
  Serious: No
  Sender: FDA-Public Use
  Company Number: US-ABBOTT-09P-163-0598077-00

PATIENT
  Sex: Female
  Weight: 77.18 kg

DRUGS (1)
  1. LUPRON DEPOT [Suspect]
     Indication: ENDOMETRIOSIS
     Route: 030
     Dates: start: 20090724

REACTIONS (4)
  - DRUG INEFFECTIVE [None]
  - MENSTRUAL DISORDER [None]
  - PELVIC PAIN [None]
  - VAGINAL HAEMORRHAGE [None]
